FAERS Safety Report 9834928 (Version 1)
Quarter: 2014Q1

REPORT INFORMATION
  Report Type: Spontaneous
  Country: US (occurrence: US)
  Receive Date: 20140122
  Receipt Date: 20140122
  Transmission Date: 20141002
  Serious: No
  Sender: FDA-Public Use
  Company Number: US-BAUSCH-BL-2013-005024

PATIENT
  Age: 69 Year
  Sex: Male
  Weight: 118.04 kg

DRUGS (6)
  1. ALAWAY (KETOTIFEN FUMARATE OPHTHALMIC SOLUTION) [Suspect]
     Indication: EYE PRURITUS
     Dosage: 1 DROP; TWICE A DAY; RIGHT EYE
     Route: 047
     Dates: start: 20130910, end: 20130910
  2. ALAWAY (KETOTIFEN FUMARATE OPHTHALMIC SOLUTION) [Suspect]
     Dosage: 1 DROP; TWICE A DAY; LEFT EYE
     Route: 047
     Dates: start: 20130910, end: 20130910
  3. EQUATE ARTIFICIAL TEARS [Concomitant]
     Indication: DRY EYE
     Dosage: DROP; RIGHT EYE
     Route: 047
  4. EQUATE ARTIFICIAL TEARS [Concomitant]
     Dosage: DROP; LEFT EYE
     Route: 047
  5. REFRESH LIQUIGEL [Concomitant]
     Indication: DRY EYE
     Dosage: DROP; RIGHT EYE
     Route: 047
  6. REFRESH LIQUIGEL [Concomitant]
     Dosage: DROP; LEFT EYE
     Route: 047

REACTIONS (2)
  - Drug ineffective [Unknown]
  - Eye irritation [Unknown]
